FAERS Safety Report 8164057-7 (Version None)
Quarter: 2012Q1

REPORT INFORMATION
  Report Type: 
  Country: None (occurrence: None)
  Receive Date: 20120224
  Receipt Date: 20120216
  Transmission Date: 20120608
  Serious: Yes (Other)
  Sender: FDA-Public Use
  Company Number: PHFR2012GB001202

PATIENT
  Age: 60 Year
  Sex: Female
  Weight: 76 kg

DRUGS (7)
  1. GLIMEPIRIDE [Concomitant]
  2. ZUMENON [Concomitant]
  3. BENDROFLUMETHIAZIDE [Concomitant]
  4. ATORVASTATIN [Concomitant]
  5. PERINDOPRIL ERBUMINE [Concomitant]
  6. AMLODIPINE [Concomitant]
  7. ALISKIREN [Suspect]
     Indication: HYPERTENSION
     Dosage: 300 MG, UNK
     Route: 048

REACTIONS (1)
  - CORONARY ARTERY DISEASE [None]
